FAERS Safety Report 4721574-7 (Version None)
Quarter: 2005Q3

REPORT INFORMATION
  Report Type: 
  Country: None (occurrence: None)
  Receive Date: 20050721
  Receipt Date: 20041206
  Transmission Date: 20060218
  Serious: No
  Sender: FDA-Public Use
  Company Number: US-BRISTOL-MYERS SQUIBB COMPANY-12785192

PATIENT
  Age: 73 Year
  Sex: Female
  Weight: 147 kg

DRUGS (7)
  1. COUMADIN [Suspect]
     Indication: CARDIOMEGALY
     Dosage: TOOK VARIOUS DOSES FROM 2.5 TO 6MG QD.TOOK WARFARIN 2 YRS AGO,RESTARTED RECENTLY LAST 4-6 M (2004)
     Route: 048
     Dates: start: 20020101
  2. COUMADIN [Suspect]
     Indication: ATRIAL FIBRILLATION
     Dosage: TOOK VARIOUS DOSES FROM 2.5 TO 6MG QD.TOOK WARFARIN 2 YRS AGO,RESTARTED RECENTLY LAST 4-6 M (2004)
     Route: 048
     Dates: start: 20020101
  3. TOPROL-XL [Concomitant]
  4. LASIX [Concomitant]
  5. POTASSIUM CHLORIDE [Concomitant]
  6. TYLENOL [Concomitant]
  7. BENADRYL [Concomitant]

REACTIONS (11)
  - DYSPNOEA [None]
  - ERYTHEMA [None]
  - FATIGUE [None]
  - FEELING HOT [None]
  - FLUSHING [None]
  - HEADACHE [None]
  - HEART RATE DECREASED [None]
  - HYPOKINESIA [None]
  - MUSCULOSKELETAL DISCOMFORT [None]
  - PROTHROMBIN TIME ABNORMAL [None]
  - SKIN EXFOLIATION [None]
